FAERS Safety Report 8763640 (Version 2)
Quarter: 2013Q2

REPORT INFORMATION
  Report Type: Spontaneous
  Country: PL (occurrence: PL)
  Receive Date: 20120828
  Receipt Date: 20130513
  Transmission Date: 20140414
  Serious: Yes (Death, Life-Threatening, Hospitalization, Other)
  Sender: FDA-Public Use
  Company Number: PL-VERTEX PHARMACEUTICAL INC.-2012-019777

PATIENT
  Age: 58 Year
  Sex: Male
  Weight: 64 kg

DRUGS (3)
  1. INCIVO [Suspect]
     Indication: HEPATIC CIRRHOSIS
     Dosage: UNK
     Route: 048
     Dates: start: 20120418, end: 20120713
  2. PEGASYS [Suspect]
     Indication: PRODUCT USED FOR UNKNOWN INDICATION
     Dosage: DOSE: 135 (UNITS NOT REPORTED)
     Route: 058
     Dates: start: 20120418
  3. COPEGUS [Suspect]
     Indication: PRODUCT USED FOR UNKNOWN INDICATION
     Dosage: 200 MG, BID
     Route: 065
     Dates: start: 20120418

REACTIONS (7)
  - Pyrexia [Unknown]
  - General physical health deterioration [Unknown]
  - Death [Fatal]
  - Thrombocytopenia [Unknown]
  - Sepsis [Unknown]
  - Haemorrhage [Unknown]
  - Somnolence [Unknown]
